FAERS Safety Report 5017436-0 (Version None)
Quarter: 2006Q2

REPORT INFORMATION
  Report Type: 
  Country: None (occurrence: None)
  Receive Date: 20060525
  Receipt Date: 20060516
  Transmission Date: 20061013
  Serious: Yes (Hospitalization)
  Sender: FDA-Public Use
  Company Number: 200611954BCC

PATIENT
  Age: 57 Year
  Sex: Male
  Weight: 102.0593 kg

DRUGS (9)
  1. ALEVE [Suspect]
     Indication: OSTEOARTHRITIS
     Dosage: 880 MG, TOTAL DAILY; ORAL
     Route: 048
     Dates: start: 20020101, end: 20041101
  2. NEXIUM [Concomitant]
  3. BENICAR [Concomitant]
  4. HYDROCODONE [Concomitant]
  5. ECOTRIN [Concomitant]
  6. VIOXX [Concomitant]
  7. MULTIVITAMIN [Concomitant]
  8. FISH OIL [Concomitant]
  9. IRON [Concomitant]

REACTIONS (4)
  - GASTRIC ULCER [None]
  - GASTROINTESTINAL NECROSIS [None]
  - INFECTION [None]
  - LOSS OF CONSCIOUSNESS [None]
